FAERS Safety Report 23234201 (Version 1)
Quarter: 2023Q4

REPORT INFORMATION
  Report Type: Report from Study
  Country: US (occurrence: US)
  Receive Date: 20231128
  Receipt Date: 20231128
  Transmission Date: 20240110
  Serious: No
  Sender: FDA-Public Use
  Company Number: US-drreddys-SPO/USA/23/0183030

PATIENT
  Age: 5 Year
  Sex: Male
  Weight: 19.613 kg

DRUGS (1)
  1. SAPROPTERIN DIHYDROCHLORIDE [Suspect]
     Active Substance: SAPROPTERIN DIHYDROCHLORIDE
     Indication: Phenylketonuria
     Dosage: 4 100 MG POWDER PACKETS BY MOUTH
     Route: 048

REACTIONS (1)
  - Pyrexia [Unknown]
